FAERS Safety Report 11274524 (Version 3)
Quarter: 2015Q3

REPORT INFORMATION
  Report Type: Spontaneous
  Country: CH (occurrence: RO)
  Receive Date: 20150715
  Receipt Date: 20150903
  Transmission Date: 20151125
  Serious: Yes (Life-Threatening)
  Sender: FDA-Public Use
  Company Number: CH-LPDUSPRD-20150544

PATIENT
  Age: 36 Year
  Sex: Female
  Weight: 70 kg

DRUGS (1)
  1. FERINJECT [Suspect]
     Active Substance: FERRIC CARBOXYMALTOSE
     Dosage: 500MG/500 ML SOLUTION
     Route: 041
     Dates: start: 20150702, end: 20150702

REACTIONS (4)
  - Hyperhidrosis [Unknown]
  - Product preparation error [Unknown]
  - Asphyxia [Unknown]
  - Pallor [Unknown]

NARRATIVE: CASE EVENT DATE: 20150702
